FAERS Safety Report 17839200 (Version 1)
Quarter: 2020Q2

REPORT INFORMATION
  Report Type: Spontaneous
  Country: US (occurrence: US)
  Receive Date: 20200529
  Receipt Date: 20200529
  Transmission Date: 20200714
  Serious: Yes (Disabling, Other)
  Sender: FDA-Public Use
  Company Number: None

PATIENT
  Age: 45 Year
  Sex: Female
  Weight: 123.75 kg

DRUGS (3)
  1. NP THYROID [Suspect]
     Active Substance: LEVOTHYROXINE\LIOTHYRONINE
     Indication: HYPOTHYROIDISM
     Dosage: ?
     Route: 048
     Dates: start: 20190621, end: 20190924
  2. PANTAPRAZOL [Concomitant]
  3. IBUPROFEN. [Concomitant]
     Active Substance: IBUPROFEN

REACTIONS (5)
  - Dyspareunia [None]
  - Vulvovaginal injury [None]
  - Skin tightness [None]
  - Vaginal disorder [None]
  - Skin laceration [None]

NARRATIVE: CASE EVENT DATE: 20190801
